FAERS Safety Report 16733180 (Version 3)
Quarter: 2020Q2

REPORT INFORMATION
  Report Type: Spontaneous
  Country: US (occurrence: US)
  Receive Date: 20190823
  Receipt Date: 20200526
  Transmission Date: 20200713
  Serious: Yes (Death, Hospitalization, Other)
  Sender: FDA-Public Use
  Company Number: US-ASTRAZENECA-2019SF18908

PATIENT
  Age: 21184 Day
  Sex: Male
  Weight: 165.6 kg

DRUGS (24)
  1. STELARA [Concomitant]
     Active Substance: USTEKINUMAB
  2. FARXIGA [Suspect]
     Active Substance: DAPAGLIFLOZIN PROPANEDIOL
     Indication: WEIGHT DECREASED
     Route: 048
     Dates: start: 20150914, end: 20170816
  3. FLUTICASONE. [Concomitant]
     Active Substance: FLUTICASONE
  4. CYCLOBENZAPRINE. [Concomitant]
     Active Substance: CYCLOBENZAPRINE
  5. LISINOPRIL. [Concomitant]
     Active Substance: LISINOPRIL
  6. CIPROFLOXACIN. [Concomitant]
     Active Substance: CIPROFLOXACIN
  7. FARXIGA [Suspect]
     Active Substance: DAPAGLIFLOZIN PROPANEDIOL
     Indication: BLOOD PRESSURE DECREASED
     Route: 048
     Dates: start: 20150914
  8. LANTUS SOLOSTAR [Concomitant]
     Active Substance: INSULIN GLARGINE
  9. ULTRAM [Concomitant]
     Active Substance: TRAMADOL HYDROCHLORIDE
  10. IBUPROFEN. [Concomitant]
     Active Substance: IBUPROFEN
  11. FARXIGA [Suspect]
     Active Substance: DAPAGLIFLOZIN PROPANEDIOL
     Indication: BLOOD PRESSURE DECREASED
     Route: 048
     Dates: start: 20150914, end: 20170816
  12. SULFAMETHOXAZOLE W/TRIMETHOPRIM [Concomitant]
     Active Substance: SULFAMETHOXAZOLE\TRIMETHOPRIM
  13. MOVANTIK [Concomitant]
     Active Substance: NALOXEGOL OXALATE
  14. HYDROCODONE [Concomitant]
     Active Substance: HYDROCODONE
  15. FARXIGA [Suspect]
     Active Substance: DAPAGLIFLOZIN PROPANEDIOL
     Indication: WEIGHT DECREASED
     Route: 048
     Dates: start: 20150914
  16. GABAPENTIN. [Concomitant]
     Active Substance: GABAPENTIN
  17. FARXIGA [Suspect]
     Active Substance: DAPAGLIFLOZIN PROPANEDIOL
     Indication: TYPE 2 DIABETES MELLITUS
     Route: 048
     Dates: start: 20150914, end: 20170816
  18. METAXALONE. [Concomitant]
     Active Substance: METAXALONE
  19. METHOCARBAMOL. [Concomitant]
     Active Substance: METHOCARBAMOL
  20. FARXIGA [Suspect]
     Active Substance: DAPAGLIFLOZIN PROPANEDIOL
     Indication: TYPE 2 DIABETES MELLITUS
     Route: 048
     Dates: start: 20150914
  21. LIPITOR [Concomitant]
     Active Substance: ATORVASTATIN CALCIUM
  22. VANCOMYCIN [Concomitant]
     Active Substance: VANCOMYCIN
  23. JANUMET [Concomitant]
     Active Substance: METFORMIN HYDROCHLORIDE\SITAGLIPTIN PHOSPHATE
  24. VICTOZA [Concomitant]
     Active Substance: LIRAGLUTIDE

REACTIONS (9)
  - Multiple organ dysfunction syndrome [Fatal]
  - Septic shock [Fatal]
  - Ketoacidosis [Unknown]
  - Cardiac arrest [Fatal]
  - Cardio-respiratory arrest [Fatal]
  - Scrotal abscess [Unknown]
  - Fournier^s gangrene [Fatal]
  - Sepsis [Unknown]
  - Necrotising soft tissue infection [Unknown]

NARRATIVE: CASE EVENT DATE: 20170816
